FAERS Safety Report 19062590 (Version 2)
Quarter: 2021Q2

REPORT INFORMATION
  Report Type: Spontaneous
  Country: GB (occurrence: GB)
  Receive Date: 20210326
  Receipt Date: 20210409
  Transmission Date: 20210717
  Serious: Yes (Disabling, Other)
  Sender: FDA-Public Use
  Company Number: GB-TEVA-2021-GB-1892582

PATIENT
  Age: 58 Year
  Sex: Male

DRUGS (2)
  1. LEVOTHYROXINE. [Suspect]
     Active Substance: LEVOTHYROXINE
     Indication: AUTOIMMUNE THYROIDITIS
     Dosage: 125 MICROGRAM DAILY;
     Route: 048
     Dates: start: 2018, end: 202102
  2. LEVOTHYROXINE. [Suspect]
     Active Substance: LEVOTHYROXINE
     Indication: AUTOIMMUNE THYROIDITIS

REACTIONS (6)
  - Impaired work ability [Recovered/Resolved]
  - Muscle strength abnormal [Recovered/Resolved]
  - Food craving [Recovered/Resolved]
  - Muscular weakness [Recovered/Resolved]
  - Impaired quality of life [Recovered/Resolved]
  - Headache [Recovered/Resolved]

NARRATIVE: CASE EVENT DATE: 2018
